FAERS Safety Report 26156919 (Version 1)
Quarter: 2025Q4

REPORT INFORMATION
  Report Type: Spontaneous
  Country: US (occurrence: US)
  Receive Date: 20251215
  Receipt Date: 20251215
  Transmission Date: 20260118
  Serious: Yes (Hospitalization, Other)
  Sender: LUPIN
  Company Number: US-LUPIN PHARMACEUTICALS INC.-2025-11204

PATIENT
  Age: 43 Year
  Sex: Female

DRUGS (2)
  1. LOSARTAN [Suspect]
     Active Substance: LOSARTAN
     Indication: Product used for unknown indication
     Dosage: 50 MILLIGRAM
     Route: 065
  2. LOSARTAN [Suspect]
     Active Substance: LOSARTAN
     Dosage: 75 MILLIGRAM
     Route: 065

REACTIONS (2)
  - Thrombotic thrombocytopenic purpura [Recovering/Resolving]
  - Jaundice [Unknown]
